FAERS Safety Report 25637295 (Version 1)
Quarter: 2025Q3

REPORT INFORMATION
  Report Type: Spontaneous
  Country: EU (occurrence: EU)
  Receive Date: 20250804
  Receipt Date: 20250804
  Transmission Date: 20251021
  Serious: Yes (Other)
  Sender: ROCHE
  Company Number: None

PATIENT
  Age: 46 Year
  Sex: Male

DRUGS (3)
  1. VENETOCLAX [Suspect]
     Active Substance: VENETOCLAX
     Indication: Chronic lymphocytic leukaemia
     Route: 048
     Dates: start: 202103, end: 202104
  2. VENETOCLAX [Suspect]
     Active Substance: VENETOCLAX
     Dosage: END OF THERAPY VENETOCLAX AFTER 12 CYCLES
     Route: 048
     Dates: start: 202104, end: 202202
  3. OBINUTUZUMAB [Suspect]
     Active Substance: OBINUTUZUMAB
     Indication: Chronic lymphocytic leukaemia
     Route: 048
     Dates: start: 202103, end: 202108

REACTIONS (3)
  - Chronic lymphocytic leukaemia recurrent [Recovered/Resolved]
  - Lymphadenopathy [Recovered/Resolved]
  - Urinary tract infection [Unknown]

NARRATIVE: CASE EVENT DATE: 20210801
